FAERS Safety Report 22680000 (Version 3)
Quarter: 2023Q4

REPORT INFORMATION
  Report Type: Spontaneous
  Country: JP (occurrence: JP)
  Receive Date: 20230707
  Receipt Date: 20231109
  Transmission Date: 20240110
  Serious: Yes (Other)
  Sender: FDA-Public Use
  Company Number: JP-UCBSA-2023033914

PATIENT
  Age: 83 Year
  Sex: Male

DRUGS (2)
  1. NEUPRO [Suspect]
     Active Substance: ROTIGOTINE
     Indication: Product used for unknown indication
     Dosage: 4.5 MILLIGRAM
     Dates: start: 202209, end: 202210
  2. NEUPRO [Suspect]
     Active Substance: ROTIGOTINE
     Dosage: 9 MILLIGRAM
     Dates: start: 202209, end: 202210

REACTIONS (1)
  - Neuroleptic malignant syndrome [Unknown]
